FAERS Safety Report 10749259 (Version 2)
Quarter: 2015Q1

REPORT INFORMATION
  Report Type: Spontaneous
  Country: JP (occurrence: JP)
  Receive Date: 20150129
  Receipt Date: 20150305
  Transmission Date: 20150721
  Serious: Yes (Hospitalization)
  Sender: FDA-Public Use
  Company Number: JP-INTERMUNE, INC.-201411IM007723

PATIENT
  Age: 74 Year
  Sex: Male

DRUGS (7)
  1. PIRESPA (PIRFENIDONE) [Suspect]
     Active Substance: PIRFENIDONE
     Indication: INTERSTITIAL LUNG DISEASE
     Dosage: 200 MG
     Route: 048
     Dates: start: 20140820
  2. NEXIUM [Suspect]
     Active Substance: ESOMEPRAZOLE MAGNESIUM
     Indication: GASTRIC ULCER
     Route: 048
     Dates: start: 20140820
  3. PIRESPA (PIRFENIDONE) [Suspect]
     Active Substance: PIRFENIDONE
     Dosage: 600 MG
     Route: 048
     Dates: start: 20140910, end: 20141001
  4. CLARITHROMYCIN. [Suspect]
     Active Substance: CLARITHROMYCIN
     Indication: INTERSTITIAL LUNG DISEASE
     Route: 048
     Dates: start: 20111109
  5. DIPROPHYLLINE W/NOSCAPINE [Suspect]
     Active Substance: DYPHYLLINE\NOSCAPINE
     Indication: INTERSTITIAL LUNG DISEASE
     Route: 048
     Dates: start: 20111109
  6. MUCODYNE [Suspect]
     Active Substance: CARBOCYSTEINE
     Indication: INTERSTITIAL LUNG DISEASE
     Route: 048
     Dates: start: 20111109
  7. MUCOSOLVAN [Suspect]
     Active Substance: AMBROXOL\CLENBUTEROL
     Indication: INTERSTITIAL LUNG DISEASE
     Route: 048
     Dates: start: 20111109

REACTIONS (5)
  - Gamma-glutamyltransferase increased [None]
  - Aspartate aminotransferase increased [None]
  - Alanine aminotransferase increased [None]
  - Blood lactate dehydrogenase increased [None]
  - Hepatic function abnormal [Not Recovered/Not Resolved]

NARRATIVE: CASE EVENT DATE: 20141001
